FAERS Safety Report 11274478 (Version 2)
Quarter: 2015Q3

REPORT INFORMATION
  Report Type: Spontaneous
  Country: CH (occurrence: AE)
  Receive Date: 20150715
  Receipt Date: 20150910
  Transmission Date: 20151125
  Serious: Yes (Hospitalization)
  Sender: FDA-Public Use
  Company Number: CH-LPDUSPRD-20150538

PATIENT
  Age: 24 Year
  Sex: Female
  Weight: 61.5 kg

DRUGS (1)
  1. FERINJECT [Suspect]
     Active Substance: FERRIC CARBOXYMALTOSE
     Dosage: 500 MG, 1 IN 1 TOTAL
     Route: 041
     Dates: start: 20150601, end: 20150601

REACTIONS (4)
  - Rash papular [Unknown]
  - Urticaria [Unknown]
  - Rash generalised [Unknown]
  - Pruritus [Unknown]

NARRATIVE: CASE EVENT DATE: 20150601
